FAERS Safety Report 20547748 (Version 1)
Quarter: 2022Q1

REPORT INFORMATION
  Report Type: Spontaneous
  Country: FR (occurrence: FR)
  Receive Date: 20220303
  Receipt Date: 20220303
  Transmission Date: 20220423
  Serious: Yes (Death, Other)
  Sender: FDA-Public Use
  Company Number: None

PATIENT
  Sex: Male
  Weight: 72 kg

DRUGS (4)
  1. ESCITALOPRAM OXALATE [Interacting]
     Active Substance: ESCITALOPRAM OXALATE
     Indication: Pain
     Dosage: 10 MG, QD
     Route: 048
     Dates: start: 202112, end: 20211221
  2. FENTANYL [Interacting]
     Active Substance: FENTANYL
     Indication: Pain
     Dosage: 5MG
     Route: 050
     Dates: start: 202112, end: 20211221
  3. OXAZEPAM [Interacting]
     Active Substance: OXAZEPAM
     Indication: Product administration error
     Dosage: 5MG
     Route: 048
     Dates: start: 20211220, end: 20211220
  4. AMITRIPTYLINE HYDROCHLORIDE [Interacting]
     Active Substance: AMITRIPTYLINE HYDROCHLORIDE
     Indication: Pain
     Dosage: 5 GTT, QD
     Route: 048
     Dates: start: 202112, end: 20211221

REACTIONS (3)
  - Hypercapnic coma [Fatal]
  - Product use in unapproved indication [Unknown]
  - Drug interaction [Unknown]

NARRATIVE: CASE EVENT DATE: 20211220
